FAERS Safety Report 7945693-7 (Version None)
Quarter: 2011Q4

REPORT INFORMATION
  Report Type: 
  Country: None (occurrence: None)
  Receive Date: 20111129
  Receipt Date: 20111124
  Transmission Date: 20120403
  Serious: Yes (Hospitalization, Other)
  Sender: FDA-Public Use
  Company Number: FR-PFIZER INC-2011235951

PATIENT
  Age: 44 Year
  Sex: Female

DRUGS (3)
  1. PARACETAMOL [Suspect]
     Indication: CARPAL TUNNEL SYNDROME
     Dosage: 1 G, UNK
     Dates: end: 20110914
  2. ARTOTEC [Suspect]
     Indication: CARPAL TUNNEL SYNDROME
     Dosage: 1 DF, SINGLE
     Dates: start: 20110909, end: 20110909
  3. PARACETAMOL [Suspect]
     Indication: HEADACHE

REACTIONS (5)
  - RENAL FAILURE [None]
  - ANAPHYLACTIC SHOCK [None]
  - EPILEPSY [None]
  - RASH PRURITIC [None]
  - HEPATIC FAILURE [None]
